FAERS Safety Report 9344391 (Version 1)
Quarter: 2013Q2

REPORT INFORMATION
  Report Type: Spontaneous
  Country: CN (occurrence: CN)
  Receive Date: 20130612
  Receipt Date: 20130612
  Transmission Date: 20140414
  Serious: Yes (Other)
  Sender: FDA-Public Use
  Company Number: CN-JNJFOC-20130602684

PATIENT
  Age: 7 Year
  Sex: Male
  Weight: 19 kg

DRUGS (2)
  1. IBUPROFEN [Suspect]
     Indication: BRONCHITIS
     Dosage: 5ML, THREE TIMES A DAY
     Route: 048
     Dates: start: 20121128, end: 20121128
  2. IBUPROFEN [Suspect]
     Indication: PYREXIA
     Dosage: 5ML, THREE TIMES A DAY
     Route: 048
     Dates: start: 20121128, end: 20121128

REACTIONS (1)
  - Anaphylactoid reaction [Recovered/Resolved]
